FAERS Safety Report 5785885-9 (Version None)
Quarter: 2008Q2

REPORT INFORMATION
  Report Type: 
  Country: None (occurrence: None)
  Receive Date: 20080605
  Receipt Date: 20080226
  Transmission Date: 20081010
  Serious: No
  Sender: FDA-Public Use
  Company Number: A0711815A

PATIENT
  Age: 76 Year
  Sex: Female

DRUGS (4)
  1. ALLI [Suspect]
     Dates: end: 20080223
  2. BLOOD PRESSURE MEDICATION [Concomitant]
  3. GARLIC PILLS [Concomitant]
  4. FISH OIL [Concomitant]
     Route: 048

REACTIONS (2)
  - BACK PAIN [None]
  - MUSCULOSKELETAL PAIN [None]
